FAERS Safety Report 4615434-X (Version None)
Quarter: 2005Q1

REPORT INFORMATION
  Report Type: 
  Country: None (occurrence: None)
  Receive Date: 20050317
  Receipt Date: 20050308
  Transmission Date: 20050727
  Serious: Yes (Hospitalization)
  Sender: FDA-Public Use
  Company Number: 2005012955

PATIENT
  Age: 82 Year
  Sex: Female

DRUGS (3)
  1. CELEBREX [Suspect]
     Indication: OSTEOARTHRITIS
     Dosage: ORAL
     Route: 048
     Dates: start: 20040101, end: 20040101
  2. NABUMETONE [Suspect]
     Indication: OSTEOARTHRITIS
  3. GEZOR (HYDROCHLOROTHIAZIDE, QUINAPRIL HYDROCHLORIDE) [Concomitant]

REACTIONS (5)
  - ATRIAL FIBRILLATION [None]
  - BRONCHIAL OBSTRUCTION [None]
  - DRUG HYPERSENSITIVITY [None]
  - DRUG TOLERANCE INCREASED [None]
  - TOXIC SKIN ERUPTION [None]
